FAERS Safety Report 11510621 (Version 1)
Quarter: 2015Q3

REPORT INFORMATION
  Report Type: Spontaneous
  Country: US (occurrence: US)
  Receive Date: 20150915
  Receipt Date: 20150915
  Transmission Date: 20151125
  Serious: No
  Sender: FDA-Public Use
  Company Number: US-JNJFOC-20150710856

PATIENT
  Sex: Female
  Weight: 4.54 kg

DRUGS (4)
  1. INFANTS TYLENOL [Suspect]
     Active Substance: ACETAMINOPHEN
     Indication: HEADACHE
     Dosage: .625 ML PER DAY AS NEEDED, TAKEN ITABOUT 4 TIMES IN THE PAST MONTH AND A HALF
     Route: 048
  2. ALL OTHER THERAPEUTIC PRODUCT [Concomitant]
     Active Substance: UNSPECIFIED INGREDIENT
     Indication: INFANTILE COLIC
     Route: 065
  3. INFANTS TYLENOL [Suspect]
     Active Substance: ACETAMINOPHEN
     Indication: TEETHING
     Dosage: .625 ML PER DAY AS NEEDED, TAKEN ITABOUT 4 TIMES IN THE PAST MONTH AND A HALF
     Route: 048
  4. INFANTS TYLENOL [Suspect]
     Active Substance: ACETAMINOPHEN
     Indication: PYREXIA
     Dosage: .625 ML PER DAY AS NEEDED, TAKEN ITABOUT 4 TIMES IN THE PAST MONTH AND A HALF
     Route: 048

REACTIONS (1)
  - Somnolence [Recovered/Resolved]
